FAERS Safety Report 8967200 (Version 1)
Quarter: 2012Q4

REPORT INFORMATION
  Report Type: 
  Country: US (occurrence: US)
  Receive Date: 20121214
  Receipt Date: 20121214
  Transmission Date: 20130627
  Serious: Yes (Hospitalization)
  Sender: FDA-Public Use
  Company Number: US-GENZYME-MOZO-1000797

PATIENT
  Age: 65 Year
  Sex: Female
  Weight: 47.3 kg

DRUGS (4)
  1. MOZOBIL [Suspect]
     Indication: HAEMATOPOIETIC STEM CELL MOBILISATION
     Dosage: 27000 mcg, UNK
     Route: 058
     Dates: start: 20121022, end: 20121026
  2. MOZOBIL [Suspect]
     Indication: MYELODYSPLASTIC SYNDROME
  3. VIDAZA [Suspect]
     Indication: MYELODYSPLASTIC SYNDROME
     Dosage: 110 mg, UNK
     Route: 058
     Dates: start: 20121022, end: 20121026
  4. G-CSF [Suspect]
     Indication: MYELODYSPLASTIC SYNDROME
     Dosage: 238 mcg, UNK
     Route: 058
     Dates: start: 20121022, end: 20121026

REACTIONS (2)
  - Pyrexia [Unknown]
  - Sepsis [Unknown]
